FAERS Safety Report 15372993 (Version 1)
Quarter: 2018Q3

REPORT INFORMATION
  Report Type: Report from Study
  Country: ES (occurrence: ES)
  Receive Date: 20180912
  Receipt Date: 20180912
  Transmission Date: 20181010
  Serious: Yes (Hospitalization)
  Sender: FDA-Public Use
  Company Number: ES-INCYTE CORPORATION-2018IN009196

PATIENT

DRUGS (7)
  1. JAKAVI [Suspect]
     Active Substance: RUXOLITINIB
     Dosage: 10 MG, Q12H
     Route: 048
     Dates: end: 20180526
  2. HYDREA [Concomitant]
     Active Substance: HYDROXYUREA
     Indication: CYTOREDUCTIVE SURGERY
     Dosage: 500 MG, UNK
     Route: 065
  3. JAKAVI [Suspect]
     Active Substance: RUXOLITINIB
     Dosage: 10 MG, Q12H
     Route: 048
     Dates: end: 20180618
  4. BISOPROLOL [Concomitant]
     Active Substance: BISOPROLOL
     Indication: HYPERTENSION
     Dosage: 25 MG, UNK
     Route: 065
  5. JAKAVI [Suspect]
     Active Substance: RUXOLITINIB
     Indication: MYELOFIBROSIS
     Dosage: 10 MG, Q12H
     Route: 048
     Dates: start: 20171201, end: 20180422
  6. OMEPRAZOLE. [Concomitant]
     Active Substance: OMEPRAZOLE
     Indication: GASTRIC DISORDER
     Dosage: 20 MG, UNK
     Route: 065
  7. PREDNISONE. [Concomitant]
     Active Substance: PREDNISONE
     Indication: TUMOUR ASSOCIATED FEVER
     Dosage: 32 MG, UNK
     Route: 065

REACTIONS (8)
  - Metabolic acidosis [Recovered/Resolved]
  - Pneumocystis jirovecii infection [Recovered/Resolved]
  - Renal failure [Recovered/Resolved]
  - Pneumonia [Recovered/Resolved]
  - Candida infection [Recovered/Resolved]
  - Herpes virus infection [Recovered/Resolved]
  - Pyrexia [Recovered/Resolved]
  - Albuminuria [Recovered/Resolved]

NARRATIVE: CASE EVENT DATE: 20180422
